FAERS Safety Report 17403972 (Version 2)
Quarter: 2020Q1

REPORT INFORMATION
  Report Type: Spontaneous
  Country: IT (occurrence: IT)
  Receive Date: 20200211
  Receipt Date: 20200327
  Transmission Date: 20200409
  Serious: Yes (Death)
  Sender: FDA-Public Use
  Company Number: IT-MYLANLABS-2020M1015507

PATIENT
  Age: 79 Year
  Sex: Female

DRUGS (7)
  1. TIMOPTOL [Concomitant]
     Active Substance: TIMOLOL
     Dosage: UNK
  2. NORVASC [Concomitant]
     Active Substance: AMLODIPINE BESYLATE
     Dosage: 2.5 MILLIGRAM
     Route: 048
  3. METOCAL VITAMINA D3 [Concomitant]
     Dosage: UNK
     Route: 048
  4. NORVASC [Concomitant]
     Active Substance: AMLODIPINE BESYLATE
     Dosage: 5 MILLIGRAM, QD
     Route: 048
  5. TICLOPIDINE [Suspect]
     Active Substance: TICLOPIDINE
     Indication: THROMBOSIS PROPHYLAXIS
     Dosage: 1 DOSAGE FORM, QD
     Route: 048
     Dates: start: 20190901, end: 20191112
  6. TAREG [Concomitant]
     Active Substance: VALSARTAN
     Dosage: 80 MILLIGRAM, QD
     Route: 048
  7. TICLOPIDINE [Suspect]
     Active Substance: TICLOPIDINE
     Dosage: 2 DOSAGE FORM, QD
     Route: 048
     Dates: start: 20190901, end: 20191112

REACTIONS (3)
  - Anaemia [Fatal]
  - Thrombocytopenia [Fatal]
  - Neutropenia [Fatal]

NARRATIVE: CASE EVENT DATE: 20191112
